FAERS Safety Report 12591370 (Version 2)
Quarter: 2016Q3

REPORT INFORMATION
  Report Type: Spontaneous
  Country: US (occurrence: US)
  Receive Date: 20160726
  Receipt Date: 20160726
  Transmission Date: 20161109
  Serious: No
  Sender: FDA-Public Use
  Company Number: US-UNITED THERAPEUTICS-UNT-2015-016479

PATIENT
  Age: 66 Year
  Sex: Female
  Weight: 68.48 kg

DRUGS (4)
  1. REMODULIN [Suspect]
     Active Substance: TREPROSTINIL
     Indication: PULMONARY HYPERTENSION
     Dosage: 0.0275 ?G/KG, CONTINUING
     Route: 058
     Dates: start: 20130909
  2. LETAIRIS [Suspect]
     Active Substance: AMBRISENTAN
     Indication: PULMONARY HYPERTENSION
     Dosage: 10 MG, QD
     Route: 048
     Dates: start: 20070810
  3. REVATIO [Suspect]
     Active Substance: SILDENAFIL CITRATE
     Indication: PRODUCT USED FOR UNKNOWN INDICATION
     Route: 065
  4. COUMADIN [Suspect]
     Active Substance: WARFARIN SODIUM
     Indication: PRODUCT USED FOR UNKNOWN INDICATION
     Route: 065

REACTIONS (7)
  - Pruritus generalised [Unknown]
  - Infusion site erythema [Unknown]
  - Infusion site infection [Unknown]
  - Staphylococcal infection [Unknown]
  - Infusion site oedema [Unknown]
  - Infusion site pain [Unknown]
  - Vasodilatation [Unknown]

NARRATIVE: CASE EVENT DATE: 201512
